FAERS Safety Report 9314294 (Version 2)
Quarter: 2013Q2

REPORT INFORMATION
  Report Type: Report from Study
  Country: DE (occurrence: DE)
  Receive Date: 20130529
  Receipt Date: 20130612
  Transmission Date: 20140414
  Serious: Yes (Hospitalization)
  Sender: FDA-Public Use
  Company Number: PHHO2013DE003433

PATIENT
  Age: 47 Year
  Sex: Male
  Weight: 62 kg

DRUGS (4)
  1. MYCOPHENOLIC ACID [Suspect]
     Indication: PANCREAS TRANSPLANT
     Dosage: 720 MG
     Route: 048
     Dates: start: 20120803
  2. MYCOPHENOLIC ACID [Suspect]
     Dosage: 360 MG, UNK
     Route: 048
  3. PROGRAF [Concomitant]
     Indication: PANCREAS TRANSPLANT
     Dosage: 6 MG
     Route: 048
     Dates: start: 20120803
  4. PROGRAF [Concomitant]
     Dosage: 5 MG, UNK
     Route: 048

REACTIONS (4)
  - Peripancreatic fluid collection [Recovering/Resolving]
  - Pancreas infection [Recovering/Resolving]
  - Abdominal pain [Recovered/Resolved]
  - Diarrhoea [Recovered/Resolved]
